FAERS Safety Report 16919041 (Version 5)
Quarter: 2022Q4

REPORT INFORMATION
  Report Type: Spontaneous
  Country: US (occurrence: US)
  Receive Date: 20191015
  Receipt Date: 20221220
  Transmission Date: 20230113
  Serious: Yes (Other)
  Sender: FDA-Public Use
  Company Number: US-PFIZER INC-2019441729

PATIENT
  Age: 63 Year
  Sex: Female

DRUGS (2)
  1. XELJANZ [Suspect]
     Active Substance: TOFACITINIB CITRATE
     Indication: Rheumatoid arthritis
     Dosage: 5 MG, UNK
     Dates: start: 201904
  2. XELJANZ [Suspect]
     Active Substance: TOFACITINIB CITRATE
     Dosage: 5 MG, 2X/DAY
     Route: 048

REACTIONS (9)
  - Cerebrovascular accident [Unknown]
  - Blindness unilateral [Unknown]
  - Atrial fibrillation [Unknown]
  - Drug ineffective [Unknown]
  - Sinusitis [Unknown]
  - Seasonal allergy [Unknown]
  - Malaise [Unknown]
  - Pain [Unknown]
  - Treatment noncompliance [Unknown]
